FAERS Safety Report 19010521 (Version 3)
Quarter: 2021Q3

REPORT INFORMATION
  Report Type: Spontaneous
  Country: IT (occurrence: IT)
  Receive Date: 20210316
  Receipt Date: 20210816
  Transmission Date: 20211014
  Serious: Yes (Death, Life-Threatening, Other)
  Sender: FDA-Public Use
  Company Number: IT-AMGEN-ITASP2021036493

PATIENT

DRUGS (3)
  1. LENALIDOMIDE [Concomitant]
     Active Substance: LENALIDOMIDE
     Indication: PLASMA CELL MYELOMA
     Dosage: UNK
     Route: 065
  2. CARFILZOMIB [Suspect]
     Active Substance: CARFILZOMIB
     Indication: PLASMA CELL MYELOMA
     Dosage: UNK
     Route: 065
  3. DEXAMETHASONE. [Concomitant]
     Active Substance: DEXAMETHASONE
     Indication: PLASMA CELL MYELOMA
     Dosage: UNK
     Route: 065

REACTIONS (15)
  - Breast cancer [Unknown]
  - Off label use [Unknown]
  - Death [Fatal]
  - Thrombocytopenia [Unknown]
  - Thyroid cancer [Unknown]
  - Hypertension [Unknown]
  - Thrombotic microangiopathy [Unknown]
  - Infection [Unknown]
  - Cardiac disorder [Unknown]
  - Acute lymphocytic leukaemia [Unknown]
  - Neutropenia [Unknown]
  - Plasma cell myeloma [Unknown]
  - Gastrointestinal disorder [Unknown]
  - Myelodysplastic syndrome [Unknown]
  - Skin cancer [Unknown]
